FAERS Safety Report 9524708 (Version 1)
Quarter: 2013Q1

REPORT INFORMATION
  Report Type: Spontaneous
  Country: US (occurrence: None)
  Receive Date: 20130314
  Receipt Date: 20130314
  Transmission Date: 20140127
  Serious: No
  Sender: FDA-Public Use
  Company Number: 1301USA002622

PATIENT
  Age: 55 Year
  Sex: Female

DRUGS (3)
  1. PEG-INTRON (PEGINTERFERON ALFA-2B) POWDER FOR INJECTION [Suspect]
     Indication: HEPATITIS C
     Route: 058
     Dates: start: 20121106
  2. REBETOL (RIBAVIRIN) CAPSULE [Suspect]
     Route: 048
     Dates: start: 20121106
  3. VICTRELIS (BOCEPREVIR) CAPSULE [Suspect]
     Indication: HEPATITIS C
     Route: 048
     Dates: start: 20130103

REACTIONS (11)
  - Asthenia [None]
  - Diarrhoea [None]
  - Nausea [None]
  - Pruritus generalised [None]
  - Rash [None]
  - Dyspnoea [None]
  - Decreased appetite [None]
  - Irritability [None]
  - Fatigue [None]
  - Asthenia [None]
  - Injection site reaction [None]
